FAERS Safety Report 6239388-8 (Version None)
Quarter: 2009Q2

REPORT INFORMATION
  Report Type: 
  Country: None (occurrence: None)
  Receive Date: 20090618
  Receipt Date: 20090618
  Transmission Date: 20091009
  Serious: Yes (Other)
  Sender: FDA-Public Use
  Company Number: None

PATIENT
  Sex: Male
  Weight: 96.1626 kg

DRUGS (4)
  1. CLONAZEPAM [Suspect]
     Indication: CONVULSION PROPHYLAXIS
     Dosage: 1 MG 3 TIMES A DAY PO
     Route: 048
     Dates: start: 20090209, end: 20090610
  2. CLONAZEPAM [Suspect]
     Indication: DRUG ABUSE
     Dosage: 1 MG 3 TIMES A DAY PO
     Route: 048
     Dates: start: 20090209, end: 20090610
  3. CLONAZEPAM [Suspect]
     Indication: GENERALISED ANXIETY DISORDER
     Dosage: 1 MG 3 TIMES A DAY PO
     Route: 048
     Dates: start: 20090209, end: 20090610
  4. CLONAZEPAM [Suspect]
     Indication: PANIC DISORDER
     Dosage: 1 MG 3 TIMES A DAY PO
     Route: 048
     Dates: start: 20090209, end: 20090610

REACTIONS (11)
  - CHEST PAIN [None]
  - CONDITION AGGRAVATED [None]
  - DEPENDENCE [None]
  - DEPRESSION [None]
  - DRUG ABUSE [None]
  - DRUG INEFFECTIVE [None]
  - DRUG SCREEN NEGATIVE [None]
  - PANIC REACTION [None]
  - PRODUCT COUNTERFEIT [None]
  - PRODUCT MEASURED POTENCY ISSUE [None]
  - PRODUCT SUBSTITUTION ISSUE [None]
